FAERS Safety Report 17718613 (Version 1)
Quarter: 2020Q2

REPORT INFORMATION
  Report Type: Report from Study
  Country: None (occurrence: US)
  Receive Date: 20200428
  Receipt Date: 20200428
  Transmission Date: 20200714
  Serious: Yes (Hospitalization)
  Sender: FDA-Public Use
  Company Number: US-ABBVIE-20P-163-3304345-00

PATIENT
  Age: 70 Year
  Sex: Male

DRUGS (3)
  1. IMBRUVICA [Suspect]
     Active Substance: IBRUTINIB
     Indication: B-CELL SMALL LYMPHOCYTIC LYMPHOMA
     Route: 048
     Dates: start: 20200114
  2. IMBRUVICA [Suspect]
     Active Substance: IBRUTINIB
     Route: 048
     Dates: start: 20200116
  3. IMBRUVICA [Suspect]
     Active Substance: IBRUTINIB
     Route: 048
     Dates: start: 20200110

REACTIONS (7)
  - Red blood cell count decreased [Unknown]
  - Dysuria [Unknown]
  - Head injury [Unknown]
  - Asthenia [Unknown]
  - Cystitis [Unknown]
  - Pollakiuria [Unknown]
  - Fall [Unknown]

NARRATIVE: CASE EVENT DATE: 2020
